FAERS Safety Report 6803154-2 (Version None)
Quarter: 2010Q2

REPORT INFORMATION
  Report Type: 
  Country: None (occurrence: None)
  Receive Date: 20100628
  Receipt Date: 20100618
  Transmission Date: 20101027
  Serious: Yes (Hospitalization)
  Sender: FDA-Public Use
  Company Number: A0867024A

PATIENT
  Sex: Female
  Weight: 100 kg

DRUGS (4)
  1. SERETIDE [Suspect]
     Indication: ASTHMA
     Dosage: 1PUFF TWICE PER DAY
     Route: 055
     Dates: start: 20070101
  2. DIOVAN [Concomitant]
     Dosage: 1TAB PER DAY
     Dates: start: 20070101
  3. LASIX [Concomitant]
     Dosage: 1TAB PER DAY
     Dates: start: 20070101
  4. OMEPRAZOLE [Concomitant]
     Dosage: 1TAB PER DAY
     Dates: start: 20070101

REACTIONS (6)
  - ABDOMINAL PAIN [None]
  - ASTHMATIC CRISIS [None]
  - CHOLURIA [None]
  - OLIGURIA [None]
  - OXYGEN SATURATION DECREASED [None]
  - SOMNOLENCE [None]
